FAERS Safety Report 20404866 (Version 2)
Quarter: 2022Q1

REPORT INFORMATION
  Report Type: Report from Study
  Country: ES (occurrence: ES)
  Receive Date: 20220131
  Receipt Date: 20220221
  Transmission Date: 20220423
  Serious: Yes (Death)
  Sender: FDA-Public Use
  Company Number: ES-NOVARTISPH-PHHO2014ES011431

PATIENT
  Age: 52 Year
  Sex: Female
  Weight: 72 kg

DRUGS (6)
  1. SIPONIMOD [Suspect]
     Active Substance: SIPONIMOD
     Indication: Secondary progressive multiple sclerosis
     Dosage: UNK
     Route: 048
     Dates: start: 20131217, end: 20140820
  2. ACETAMINOPHEN [Concomitant]
     Active Substance: ACETAMINOPHEN
     Indication: Headache
     Dosage: 1 G, PRN
     Route: 048
     Dates: start: 20131105
  3. AMOXICILLIN [Concomitant]
     Active Substance: AMOXICILLIN
     Indication: Tooth extraction
     Dosage: 500 MG, Q6H
     Route: 048
     Dates: start: 20140513, end: 20140520
  4. CLONIXIN [Concomitant]
     Active Substance: CLONIXIN
     Indication: Tooth extraction
     Dosage: 125 MG, Q8H
     Route: 048
     Dates: start: 20140513, end: 20140516
  5. LYRICA [Concomitant]
     Active Substance: PREGABALIN
     Indication: Trigeminal neuralgia
     Dosage: 75 MG, Q12H
     Route: 048
     Dates: start: 20140516, end: 20140617
  6. LYRICA [Concomitant]
     Active Substance: PREGABALIN
     Dosage: 75 MG, Q12H
     Route: 048
     Dates: start: 20140618

REACTIONS (1)
  - Gastrointestinal melanoma [Fatal]

NARRATIVE: CASE EVENT DATE: 20140415
